FAERS Safety Report 12391988 (Version 1)
Quarter: 2016Q2

REPORT INFORMATION
  Report Type: Report from Study
  Country: US (occurrence: US)
  Receive Date: 20160523
  Receipt Date: 20160523
  Transmission Date: 20160815
  Serious: Yes (Hospitalization)
  Sender: FDA-Public Use
  Company Number: US-GILEAD-2016-0203958

PATIENT
  Age: 81 Year
  Sex: Female

DRUGS (2)
  1. AMBRISENTAN [Suspect]
     Active Substance: AMBRISENTAN
     Indication: PRODUCT USED FOR UNKNOWN INDICATION
     Dosage: 10 MG, QD
     Route: 065
     Dates: start: 20160222
  2. REVATIO [Concomitant]
     Active Substance: SILDENAFIL CITRATE

REACTIONS (8)
  - Tremor [Unknown]
  - Pain [Unknown]
  - Malaise [Unknown]
  - Chills [Unknown]
  - Hyperhidrosis [Unknown]
  - Tinnitus [Not Recovered/Not Resolved]
  - Pyrexia [Unknown]
  - Headache [Unknown]
